FAERS Safety Report 9992748 (Version 1)
Quarter: 2014Q1

REPORT INFORMATION
  Report Type: Spontaneous
  Country: US (occurrence: US)
  Receive Date: 20140310
  Receipt Date: 20140310
  Transmission Date: 20141002
  Serious: Yes (Hospitalization, Other)
  Sender: FDA-Public Use
  Company Number: US-BRISTOL-MYERS SQUIBB COMPANY-20352704

PATIENT
  Age: 70 Year
  Sex: Male

DRUGS (3)
  1. SINEMET [Suspect]
     Dosage: RED:2.5MG
  2. COPAXONE [Suspect]
     Indication: MULTIPLE SCLEROSIS
     Dates: start: 20130421
  3. BACLOFEN [Suspect]

REACTIONS (7)
  - Multiple sclerosis [Recovering/Resolving]
  - Asthenia [Recovering/Resolving]
  - Speech disorder [Recovering/Resolving]
  - Abasia [Recovering/Resolving]
  - Back pain [Recovering/Resolving]
  - Dysuria [Recovering/Resolving]
  - Activities of daily living impaired [Recovering/Resolving]
